FAERS Safety Report 25109559 (Version 1)
Quarter: 2025Q1

REPORT INFORMATION
  Report Type: Report from Study
  Country: US (occurrence: US)
  Receive Date: 20250323
  Receipt Date: 20250323
  Transmission Date: 20250409
  Serious: Yes (Other)
  Sender: NOVARTIS
  Company Number: US-002147023-NVSC2025US038957

PATIENT
  Age: 51 Year
  Sex: Male

DRUGS (1)
  1. COSENTYX [Suspect]
     Active Substance: SECUKINUMAB
     Indication: Psoriatic arthropathy
     Dosage: 300 MG, QMO
     Route: 058
     Dates: start: 2022

REACTIONS (6)
  - Psoriatic arthropathy [Unknown]
  - Hypokinesia [Unknown]
  - Arthralgia [Unknown]
  - Skin exfoliation [Unknown]
  - Chemical burn of skin [Unknown]
  - Product availability issue [Unknown]

NARRATIVE: CASE EVENT DATE: 20241201
